FAERS Safety Report 18601855 (Version 1)
Quarter: 2020Q4

REPORT INFORMATION
  Report Type: Spontaneous
  Country: US (occurrence: US)
  Receive Date: 20201210
  Receipt Date: 20201210
  Transmission Date: 20210114
  Serious: No
  Sender: FDA-Public Use
  Company Number: US-SA-2020SA353067

PATIENT

DRUGS (1)
  1. TOUJEO [Suspect]
     Active Substance: INSULIN GLARGINE
     Indication: TYPE 2 DIABETES MELLITUS
     Dosage: 50 IU, QD (MORNING)
     Route: 065
     Dates: start: 20201206

REACTIONS (2)
  - Product storage error [Unknown]
  - Muscle spasms [Unknown]

NARRATIVE: CASE EVENT DATE: 20201206
